FAERS Safety Report 23525443 (Version 1)
Quarter: 2024Q1

REPORT INFORMATION
  Report Type: Spontaneous
  Country: NL (occurrence: NL)
  Receive Date: 20240215
  Receipt Date: 20240215
  Transmission Date: 20240410
  Serious: Yes (Other)
  Sender: FDA-Public Use
  Company Number: NL-LRB-00945154

PATIENT
  Age: 75 Year
  Sex: Female

DRUGS (2)
  1. DORZOLAMIDE\TIMOLOL [Suspect]
     Active Substance: DORZOLAMIDE\TIMOLOL
     Indication: Glaucoma
     Dosage: 1 GTT DROPS, TWO TIMES A DAY
     Route: 047
     Dates: start: 20230801, end: 20240124
  2. LATANOPROST [Concomitant]
     Active Substance: LATANOPROST
     Indication: Product used for unknown indication
     Dosage: 50 ?G/ML
     Route: 047

REACTIONS (2)
  - Loss of consciousness [Recovered/Resolved]
  - Condition aggravated [Recovered/Resolved]
